FAERS Safety Report 9640707 (Version 4)
Quarter: 2014Q1

REPORT INFORMATION
  Report Type: Spontaneous
  Country: US (occurrence: None)
  Receive Date: 20131021
  Receipt Date: 20140127
  Transmission Date: 20141002
  Serious: Yes (Hospitalization, Other)
  Sender: FDA-Public Use
  Company Number: 2013US002646

PATIENT
  Age: 60 Year
  Sex: Male
  Weight: 75 kg

DRUGS (1)
  1. ICLUSIG [Suspect]
     Indication: CHRONIC MYELOID LEUKAEMIA
     Route: 048
     Dates: start: 20130925, end: 20131005

REACTIONS (19)
  - Joint swelling [None]
  - Pulmonary embolism [None]
  - Cardiac failure congestive [None]
  - Liver injury [None]
  - Dyspnoea [None]
  - Abdominal distension [None]
  - Oedema peripheral [None]
  - Congestive cardiomyopathy [None]
  - Hypoxia [None]
  - Thrombophlebitis superficial [None]
  - Pancytopenia [None]
  - Aortic valve incompetence [None]
  - Mitral valve incompetence [None]
  - Myocardial fibrosis [None]
  - Blood bilirubin increased [None]
  - Aspartate aminotransferase increased [None]
  - Alanine aminotransferase increased [None]
  - Blood alkaline phosphatase increased [None]
  - Myocardial ischaemia [None]
